FAERS Safety Report 10448066 (Version 2)
Quarter: 2014Q3

REPORT INFORMATION
  Report Type: Spontaneous
  Country: FR (occurrence: FR)
  Receive Date: 20140911
  Receipt Date: 20140924
  Transmission Date: 20150326
  Serious: Yes (Hospitalization)
  Sender: FDA-Public Use
  Company Number: FR-PFIZER INC-2014251416

PATIENT
  Age: 48 Year
  Sex: Female

DRUGS (7)
  1. TERCIAN [Suspect]
     Active Substance: CYAMEMAZINE
     Dosage: 750 MG, SINGLE
     Route: 048
     Dates: start: 20140509, end: 20140509
  2. BILASKA [Suspect]
     Active Substance: BILASTINE
     Dosage: 600 MG, SINGLE
     Route: 048
     Dates: start: 20140509, end: 20140509
  3. PREDNISONE. [Suspect]
     Active Substance: PREDNISONE
     Dosage: 200 MG, SINGLE
     Route: 048
     Dates: start: 20140509, end: 20140509
  4. PREDNISOLONE. [Suspect]
     Active Substance: PREDNISOLONE
     Dosage: 200 MG, UNK
     Route: 048
     Dates: start: 20140509, end: 20140509
  5. XANAX [Suspect]
     Active Substance: ALPRAZOLAM
     Dosage: 10 DF, SINGLE
     Route: 048
     Dates: start: 20140509, end: 20140509
  6. AMOXICILLIN. [Suspect]
     Active Substance: AMOXICILLIN
     Dosage: 14 DF, SINGLE
     Route: 048
     Dates: start: 20140509, end: 20140509
  7. DAFALGAN CODEINA [Suspect]
     Active Substance: ACETAMINOPHEN\CODEINE PHOSPHATE
     Dosage: 8 DF (240 MG+4000 MG) SINGLE
     Route: 048
     Dates: start: 20140509, end: 20140509

REACTIONS (6)
  - Toxicity to various agents [Recovered/Resolved]
  - Tachycardia [Recovered/Resolved]
  - Overdose [Recovered/Resolved]
  - Intentional product misuse [Recovered/Resolved]
  - Somnolence [Recovered/Resolved]
  - Hypotension [Recovered/Resolved]

NARRATIVE: CASE EVENT DATE: 20140509
